FAERS Safety Report 8906490 (Version 1)
Quarter: 2012Q4

REPORT INFORMATION
  Report Type: Spontaneous
  Country: US (occurrence: None)
  Receive Date: 20121113
  Receipt Date: 20121113
  Transmission Date: 20130627
  Serious: Yes (Other)
  Sender: FDA-Public Use
  Company Number: None

PATIENT
  Age: 51 Year
  Sex: Female
  Weight: 62.14 kg

DRUGS (1)
  1. BUPROPION [Suspect]
     Indication: DEPRESSION
     Dosage: 1 tablet  daily  po
     Route: 048
     Dates: start: 20110503, end: 20110511

REACTIONS (5)
  - Insomnia [None]
  - Panic attack [None]
  - Tremor [None]
  - Feeling of despair [None]
  - Product substitution issue [None]
